FAERS Safety Report 8089091-7 (Version None)
Quarter: 2012Q1

REPORT INFORMATION
  Report Type: 
  Country: None (occurrence: None)
  Receive Date: 20120128
  Receipt Date: 20110627
  Transmission Date: 20120608
  Serious: No
  Sender: FDA-Public Use
  Company Number: US-ABBOTT-11P-163-0834534-00

PATIENT
  Sex: Male
  Weight: 133.93 kg

DRUGS (2)
  1. CELEBREX [Concomitant]
     Indication: ANKYLOSING SPONDYLITIS
  2. HUMIRA [Suspect]
     Indication: ANKYLOSING SPONDYLITIS
     Dates: start: 20080101, end: 20110613

REACTIONS (2)
  - TOOTH INFECTION [None]
  - TOOTHACHE [None]
